FAERS Safety Report 5779047-9 (Version None)
Quarter: 2008Q2

REPORT INFORMATION
  Report Type: 
  Country: None (occurrence: None)
  Receive Date: 20080613
  Receipt Date: 20071004
  Transmission Date: 20081010
  Serious: Yes (Hospitalization, Other)
  Sender: FDA-Public Use
  Company Number: PHEH2007US12181

PATIENT
  Sex: Male

DRUGS (5)
  1. EXELON [Suspect]
     Indication: DEMENTIA ALZHEIMER'S TYPE
     Dosage: 6 MG, BID, ORAL
     Route: 048
     Dates: start: 20031120, end: 20070820
  2. ATENOLOL [Suspect]
     Indication: HEART RATE
  3. ZESTRIL [Concomitant]
  4. ASPIRIN [Concomitant]
  5. SIMVASTATIN [Concomitant]

REACTIONS (8)
  - DECREASED APPETITE [None]
  - DIABETES MELLITUS [None]
  - DIARRHOEA [None]
  - DYSPEPSIA [None]
  - HAIR GROWTH ABNORMAL [None]
  - HEART RATE DECREASED [None]
  - NAUSEA [None]
  - SYNCOPE VASOVAGAL [None]
